FAERS Safety Report 6525998-7 (Version None)
Quarter: 2010Q1

REPORT INFORMATION
  Report Type: 
  Country: None (occurrence: None)
  Receive Date: 20100104
  Receipt Date: 20060618
  Transmission Date: 20100710
  Serious: Yes (Other)
  Sender: FDA-Public Use
  Company Number: US-BAXTER-2009BH014249

PATIENT
  Age: 10 None
  Sex: Male

DRUGS (2)
  1. POLYGAM [Suspect]
     Indication: COMBINED IMMUNODEFICIENCY
  2. POLYGAM [Suspect]

REACTIONS (1)
  - HAEMOLYTIC ANAEMIA [None]
